FAERS Safety Report 7433235-4 (Version None)
Quarter: 2011Q2

REPORT INFORMATION
  Report Type: 
  Country: None (occurrence: None)
  Receive Date: 20110422
  Receipt Date: 20110418
  Transmission Date: 20111010
  Serious: Yes (Death, Hospitalization)
  Sender: FDA-Public Use
  Company Number: US-CELGENEUS-163-21880-11042422

PATIENT
  Age: 72 Year
  Sex: Female

DRUGS (13)
  1. HALOPERIDOL [Concomitant]
     Route: 065
  2. REVLIMID [Suspect]
     Indication: MULTIPLE MYELOMA
     Dosage: 10 MILLIGRAM
     Route: 048
     Dates: start: 20100201, end: 20100701
  3. DEXAMETHASONE [Concomitant]
     Route: 065
  4. ASPIRIN [Concomitant]
     Route: 065
  5. LACTULOSE [Concomitant]
     Route: 065
  6. DOCUSATE [Concomitant]
     Route: 065
  7. SENNA [Concomitant]
     Route: 065
  8. MIRTAZAPINE [Concomitant]
     Route: 065
  9. REVLIMID [Suspect]
     Dosage: 10 MILLIGRAM
     Route: 048
     Dates: start: 20101101
  10. METHADONE [Concomitant]
     Route: 065
  11. OMEPRAZOLE [Concomitant]
     Route: 065
  12. PROCHLORPERAZINE TAB [Concomitant]
     Route: 065
  13. LORAZEPAM [Concomitant]
     Route: 065

REACTIONS (1)
  - MULTIPLE MYELOMA [None]
